FAERS Safety Report 25149966 (Version 2)
Quarter: 2025Q2

REPORT INFORMATION
  Report Type: Spontaneous
  Country: US (occurrence: US)
  Receive Date: 20250402
  Receipt Date: 20250410
  Transmission Date: 20250716
  Serious: No
  Sender: BAYER
  Company Number: US-BAYER-2025A042533

PATIENT
  Sex: Female

DRUGS (1)
  1. ESTRADIOL [Suspect]
     Active Substance: ESTRADIOL
     Route: 062
     Dates: start: 20250315

REACTIONS (7)
  - Application site erythema [None]
  - Dermatitis contact [None]
  - Application site pruritus [None]
  - Application site irritation [None]
  - Rash macular [None]
  - Application site pruritus [None]
  - Inappropriate schedule of product administration [None]

NARRATIVE: CASE EVENT DATE: 20250101
